FAERS Safety Report 7590196-5 (Version None)
Quarter: 2011Q3

REPORT INFORMATION
  Report Type: 
  Country: None (occurrence: None)
  Receive Date: 20110705
  Receipt Date: 20110630
  Transmission Date: 20111222
  Serious: Yes (Death, Life-Threatening, Hospitalization)
  Sender: FDA-Public Use
  Company Number: GB-PFIZER INC-2011146335

PATIENT
  Age: 59 Year
  Sex: Female
  Weight: 79 kg

DRUGS (12)
  1. BROMOCRIPTINE [Concomitant]
     Dosage: 17.5 MG, DAILY
     Dates: start: 19790522
  2. LEVOTHYROXINE SODIUM [Concomitant]
     Indication: BLOOD THYROID STIMULATING HORMONE DECREASED
     Dosage: 100 UG, DAILY
     Dates: start: 20041112
  3. OMEPRAZOLE [Concomitant]
     Indication: GASTRIC ULCER
     Dosage: 20 MG, DAILY
     Dates: start: 20081007
  4. LEVOTHYROXINE SODIUM [Concomitant]
     Indication: PRIMARY HYPOTHYROIDISM
  5. OMEPRAZOLE [Concomitant]
     Indication: DUODENAL ULCER
  6. BROMOCRIPTINE [Concomitant]
     Indication: PARKINSONISM
     Dosage: 2.5 MG, 2X/DAY
     Dates: start: 19770719
  7. BROMOCRIPTINE [Concomitant]
     Dosage: 2.5 MG, 3X/DAY
     Dates: start: 19771018
  8. BROMOCRIPTINE [Concomitant]
     Dosage: 2.5 MG, SINCE
     Dates: start: 19811023
  9. BROMOCRIPTINE [Concomitant]
     Dosage: 10 MG, DAILY
     Dates: start: 19780609
  10. BROMOCRIPTINE [Concomitant]
     Dosage: 15 MG, DAILY
     Dates: start: 19790227
  11. BROMOCRIPTINE [Concomitant]
     Dosage: 5 MG, DAILY
     Dates: start: 19821027
  12. SOMATROPIN [Suspect]
     Indication: HYPOPITUITARISM
     Dosage: 0.1 MG, 1XDAY, 7INJECTIONS/WEEK
     Dates: start: 20050414

REACTIONS (1)
  - DEATH [None]
